FAERS Safety Report 10034211 (Version 2)
Quarter: 2014Q2

REPORT INFORMATION
  Report Type: Spontaneous
  Country: US (occurrence: US)
  Receive Date: 20140325
  Receipt Date: 20140424
  Transmission Date: 20141212
  Serious: Yes (Hospitalization)
  Sender: FDA-Public Use
  Company Number: US-ASTRAZENECA-2014SE18622

PATIENT
  Sex: Male

DRUGS (2)
  1. SYMBICORT [Suspect]
     Dosage: 160/4.5, 2 PUFFS BID
     Route: 055
  2. SYMBICORT [Suspect]
     Route: 055
     Dates: start: 20140225

REACTIONS (1)
  - Circumstance or information capable of leading to device use error [Unknown]
